FAERS Safety Report 10214083 (Version 1)
Quarter: 2014Q2

REPORT INFORMATION
  Report Type: Spontaneous
  Country: US (occurrence: US)
  Receive Date: 20140603
  Receipt Date: 20140603
  Transmission Date: 20141212
  Serious: Yes (Hospitalization)
  Sender: FDA-Public Use
  Company Number: US-SA-2014SA070213

PATIENT
  Age: 57 Year
  Sex: Male

DRUGS (10)
  1. LOVENOX [Suspect]
     Indication: PRODUCT USED FOR UNKNOWN INDICATION
     Route: 065
     Dates: start: 20140502
  2. LOVENOX [Suspect]
     Indication: PRODUCT USED FOR UNKNOWN INDICATION
     Route: 065
     Dates: start: 20140502
  3. LOVENOX [Suspect]
     Indication: PRODUCT USED FOR UNKNOWN INDICATION
     Route: 065
     Dates: start: 20140502
  4. EPOPROSTENOL [Suspect]
     Indication: PULMONARY ARTERIAL HYPERTENSION
     Dosage: 32 NG/KG/MIN
     Route: 042
     Dates: start: 20130625
  5. EPOPROSTENOL [Suspect]
     Indication: PULMONARY ARTERIAL HYPERTENSION
     Dosage: 32 NG/KG/MIN
     Route: 042
     Dates: start: 20130625
  6. EPOPROSTENOL [Suspect]
     Indication: PULMONARY ARTERIAL HYPERTENSION
     Dosage: 32 NG/KG/MIN
     Route: 042
     Dates: start: 20130625
  7. AMBRISENTAN [Suspect]
     Indication: PRODUCT USED FOR UNKNOWN INDICATION
     Route: 065
     Dates: end: 201311
  8. ALL OTHER THERAPEUTIC PRODUCTS [Suspect]
     Indication: PRODUCT USED FOR UNKNOWN INDICATION
     Route: 065
  9. TADALAFIL [Concomitant]
  10. WARFARIN SODIUM [Concomitant]

REACTIONS (12)
  - Mitral perforation [Recovered/Resolved]
  - Mitral valve replacement [Recovered/Resolved]
  - Cardiac operation [Unknown]
  - Oedema [Unknown]
  - Blood pressure decreased [Unknown]
  - Dizziness [Unknown]
  - Urticaria [Unknown]
  - Eye swelling [Unknown]
  - Application site vesicles [Unknown]
  - Ill-defined disorder [Unknown]
  - Catheter site discharge [Unknown]
  - Investigation [Unknown]
